FAERS Safety Report 8477945-9 (Version None)
Quarter: 2012Q2

REPORT INFORMATION
  Report Type: 
  Country: None (occurrence: None)
  Receive Date: 20120629
  Receipt Date: 20120618
  Transmission Date: 20120825
  Serious: Yes (Other)
  Sender: FDA-Public Use
  Company Number: JP-PFIZER INC-2012146396

PATIENT
  Age: 71 Year
  Sex: Male

DRUGS (4)
  1. LEVOFLOXACIN [Interacting]
     Dosage: 500 MG, UNK
     Route: 048
  2. CARBOCISTEINE [Concomitant]
     Dosage: UNK
     Route: 048
  3. CELEBREX [Suspect]
     Dosage: UNK
     Route: 048
  4. SELBEX [Concomitant]
     Dosage: UNK
     Route: 048

REACTIONS (4)
  - DRUG INTERACTION [None]
  - BLOOD PRESSURE DECREASED [None]
  - SHOCK [None]
  - NASOPHARYNGITIS [None]
